FAERS Safety Report 22521325 (Version 4)
Quarter: 2024Q1

REPORT INFORMATION
  Report Type: Spontaneous
  Country: US (occurrence: US)
  Receive Date: 20230605
  Receipt Date: 20240105
  Transmission Date: 20240410
  Serious: No
  Sender: FDA-Public Use
  Company Number: US-PFIZER INC-PV202300073290

PATIENT
  Age: 57 Year
  Sex: Female

DRUGS (1)
  1. IBRANCE [Suspect]
     Active Substance: PALBOCICLIB
     Dosage: 125 MG

REACTIONS (5)
  - Decreased appetite [Unknown]
  - Dry skin [Not Recovered/Not Resolved]
  - Dry mouth [Unknown]
  - Fatigue [Unknown]
  - Constipation [Unknown]
